FAERS Safety Report 18929989 (Version 2)
Quarter: 2021Q1

REPORT INFORMATION
  Report Type: Spontaneous
  Country: LT (occurrence: LT)
  Receive Date: 20210223
  Receipt Date: 20210325
  Transmission Date: 20210420
  Serious: Yes (Other)
  Sender: FDA-Public Use
  Company Number: NVSC2021LT041351

PATIENT
  Sex: Male
  Weight: 36.12 kg

DRUGS (9)
  1. METOPROLOL. [Suspect]
     Active Substance: METOPROLOL
     Indication: FOETAL EXPOSURE DURING PREGNANCY
     Dosage: MATERNAL DOSE : 50 MG
     Route: 064
  2. SOTALOL. [Suspect]
     Active Substance: SOTALOL
     Indication: FOETAL EXPOSURE DURING PREGNANCY
     Dosage: MATERNAL DOSE : 80 MG, Q8H
     Route: 064
  3. OSELTAMIVIR [Suspect]
     Active Substance: OSELTAMIVIR
     Indication: FOETAL EXPOSURE DURING PREGNANCY
     Dosage: MATERNAL DOSE : UNK
     Route: 064
  4. DIGOXIN. [Suspect]
     Active Substance: DIGOXIN
     Indication: FOETAL EXPOSURE DURING PREGNANCY
     Dosage: MATERNAL DOSE : 0.25 MG (REPEATED AFTER 2.5 HOURS)
     Route: 064
  5. DEXAMETHASONE. [Suspect]
     Active Substance: DEXAMETHASONE
     Indication: FOETAL EXPOSURE DURING PREGNANCY
     Dosage: MATERNAL DOSE : 12 MG
     Route: 064
  6. DIGOXIN. [Suspect]
     Active Substance: DIGOXIN
     Dosage: MATERNAL DOSE:0.25 MG
     Route: 064
  7. PROPAFENONE. [Suspect]
     Active Substance: PROPAFENONE
     Indication: FOETAL EXPOSURE DURING PREGNANCY
     Dosage: MATERNAL DOSE : 140 MG, SINGLE DOSE
     Route: 064
  8. PROPAFENONE. [Suspect]
     Active Substance: PROPAFENONE
     Dosage: MATERNAL DOSE: 150 MG
     Route: 064
  9. DIGOXIN. [Suspect]
     Active Substance: DIGOXIN
     Dosage: MATERNAL DOSE : 0.25 MG,QD
     Route: 064

REACTIONS (11)
  - Blood pressure immeasurable [Unknown]
  - Foetal movement disorder [Unknown]
  - Tachyarrhythmia [Unknown]
  - Ascites [Unknown]
  - Supraventricular tachycardia [Unknown]
  - Cyanosis [Unknown]
  - Wolff-Parkinson-White syndrome [Unknown]
  - Tachypnoea [Unknown]
  - Foetal exposure during pregnancy [Unknown]
  - Drug ineffective [Unknown]
  - Oedema [Unknown]
